FAERS Safety Report 23161875 (Version 1)
Quarter: 2023Q4

REPORT INFORMATION
  Report Type: Other
  Country: EG (occurrence: EG)
  Receive Date: 20231109
  Receipt Date: 20231109
  Transmission Date: 20240110
  Serious: Yes (Other)
  Sender: FDA-Public Use
  Company Number: EG-002147023-NVSC2023EG234675

PATIENT
  Age: 76 Year
  Sex: Male

DRUGS (2)
  1. LUCENTIS [Suspect]
     Active Substance: RANIBIZUMAB
     Indication: Macular oedema
     Dosage: UNK (STARTED 4 MONTHS AGO IN LEFT EYE AND STOPPED ONE MONTH AGO IN LEFT EYE),  10 MILLIGRAM PER MILL
     Route: 050
     Dates: end: 202309
  2. LUCENTIS [Suspect]
     Active Substance: RANIBIZUMAB
     Dosage: (STARTED AND STOPPED 4-5 DAYS AGO IN RIGHT EYE), 10 MILLIGRAM PER MILLILITER
     Route: 050
     Dates: start: 202310, end: 202310

REACTIONS (1)
  - Macular oedema [Unknown]

NARRATIVE: CASE EVENT DATE: 20231001
